FAERS Safety Report 7134086-0 (Version None)
Quarter: 2010Q4

REPORT INFORMATION
  Report Type: 
  Country: None (occurrence: None)
  Receive Date: 20101117
  Receipt Date: 20101105
  Transmission Date: 20110411
  Serious: Yes (Hospitalization)
  Sender: FDA-Public Use
  Company Number: KV201000338

PATIENT
  Age: 28 Year
  Sex: Male

DRUGS (3)
  1. METOPROLOL SUCCINATE [Suspect]
     Indication: SINUS TACHYCARDIA
  2. AMITRIPTYLINE HYDROCHLORIDE [Suspect]
     Indication: NEURALGIA
  3. FLOXACILLIN SODIUM [Concomitant]

REACTIONS (9)
  - ACUTE LUNG INJURY [None]
  - DIARRHOEA [None]
  - DRUG RASH WITH EOSINOPHILIA AND SYSTEMIC SYMPTOMS [None]
  - ERYTHEMA [None]
  - GENERALISED OEDEMA [None]
  - HEPATITIS [None]
  - PYREXIA [None]
  - RENAL FAILURE [None]
  - SHOCK [None]
